FAERS Safety Report 8179349-5 (Version None)
Quarter: 2012Q1

REPORT INFORMATION
  Report Type: 
  Country: None (occurrence: None)
  Receive Date: 20120302
  Receipt Date: 20120228
  Transmission Date: 20120608
  Serious: Yes (Death, Hospitalization)
  Sender: FDA-Public Use
  Company Number: US-JNJFOC-20120300401

PATIENT
  Age: 72 Year
  Sex: Male

DRUGS (1)
  1. NUCYNTA [Suspect]
     Indication: PRODUCT USED FOR UNKNOWN INDICATION
     Route: 048
     Dates: start: 20111216, end: 20111201

REACTIONS (4)
  - INTENTIONAL OVERDOSE [None]
  - DEATH [None]
  - CONFUSIONAL STATE [None]
  - PAIN [None]
